FAERS Safety Report 9286271 (Version 1)
Quarter: 2013Q2

REPORT INFORMATION
  Report Type: Report from Study
  Country: BR (occurrence: BR)
  Receive Date: 20130513
  Receipt Date: 20130513
  Transmission Date: 20140414
  Serious: Yes (Death)
  Sender: FDA-Public Use
  Company Number: BR-ABBOTT-13P-020-1079225-00

PATIENT
  Age: 62 Year
  Sex: Female
  Weight: 47 kg

DRUGS (1)
  1. HUMIRA [Suspect]
     Indication: RHEUMATOID ARTHRITIS
     Route: 058
     Dates: start: 20130214

REACTIONS (11)
  - Pulmonary oedema [Fatal]
  - Lung infection [Fatal]
  - Immunodeficiency [Fatal]
  - Malaise [Unknown]
  - Asthenia [Not Recovered/Not Resolved]
  - Agitation [Unknown]
  - Pain [Unknown]
  - Unevaluable event [Unknown]
  - Abdominal pain upper [Not Recovered/Not Resolved]
  - Back pain [Not Recovered/Not Resolved]
  - Vomiting [Not Recovered/Not Resolved]
